FAERS Safety Report 9494864 (Version 4)
Quarter: 2013Q4

REPORT INFORMATION
  Report Type: Spontaneous
  Country: FR (occurrence: FR)
  Receive Date: 20130903
  Receipt Date: 20131018
  Transmission Date: 20140711
  Serious: Yes (Life-Threatening, Hospitalization, Other)
  Sender: FDA-Public Use
  Company Number: FR-AMGEN-FRASP2013061515

PATIENT
  Age: 70 Year
  Sex: Female
  Weight: 73 kg

DRUGS (2)
  1. NEULASTA [Suspect]
     Indication: NEUTROPENIA
     Dosage: UNK UNK, 48 HOURS AFTER CHEMOTHERAPY
     Route: 058
     Dates: start: 20130809
  2. CABAZITAXEL [Concomitant]
     Indication: OVARIAN CANCER
     Dosage: UNK
     Dates: start: 20130807

REACTIONS (11)
  - Leukopenia [Unknown]
  - Febrile neutropenia [Unknown]
  - Febrile bone marrow aplasia [Unknown]
  - Thrombocytopenia [Recovered/Resolved]
  - Anaemia macrocytic [Unknown]
  - Blood creatinine increased [Unknown]
  - Oral herpes [Unknown]
  - C-reactive protein increased [Unknown]
  - Pneumonia [Unknown]
  - Infection [Recovering/Resolving]
  - Weight decreased [Unknown]
